FAERS Safety Report 20684437 (Version 1)
Quarter: 2022Q2

REPORT INFORMATION
  Report Type: Spontaneous
  Country: US (occurrence: US)
  Receive Date: 20220407
  Receipt Date: 20220407
  Transmission Date: 20220720
  Serious: Yes (Other)
  Sender: FDA-Public Use
  Company Number: US-SLATE RUN PHARMACEUTICALS-22US001009

PATIENT

DRUGS (1)
  1. AZITHROMYCIN [Suspect]
     Active Substance: AZITHROMYCIN
     Indication: Antibiotic therapy
     Dosage: UNK

REACTIONS (13)
  - Cardiac murmur [Unknown]
  - Beta haemolytic streptococcal infection [Unknown]
  - Endocarditis [Unknown]
  - Atrioventricular block first degree [Unknown]
  - Bicuspid aortic valve [Unknown]
  - Cardiac valve vegetation [Unknown]
  - Intracardiac mass [Unknown]
  - Cardiac valve rupture [Unknown]
  - Aorto-atrial fistula [Unknown]
  - Cardiac valve abscess [Unknown]
  - Lung infiltration [Unknown]
  - Therapy non-responder [Unknown]
  - Thrombocytopenia [Unknown]
